FAERS Safety Report 9310811 (Version 2)
Quarter: 2013Q3

REPORT INFORMATION
  Report Type: Spontaneous
  Country: US (occurrence: US)
  Receive Date: 20130528
  Receipt Date: 20130717
  Transmission Date: 20140515
  Serious: No
  Sender: FDA-Public Use
  Company Number: US-009507513-1305USA014081

PATIENT
  Age: 53 Year
  Sex: Female

DRUGS (3)
  1. VICTRELIS [Suspect]
     Indication: HEPATITIS C
     Dosage: 800 MG, EVERY 8 HOURS
     Route: 048
     Dates: start: 201305
  2. RIBASPHERE [Suspect]
  3. PEGASYS [Suspect]

REACTIONS (1)
  - Fatigue [Unknown]
